FAERS Safety Report 5134243-9 (Version None)
Quarter: 2006Q4

REPORT INFORMATION
  Report Type: 
  Country: None (occurrence: None)
  Receive Date: 20061019
  Receipt Date: 20061006
  Transmission Date: 20070319
  Serious: Yes (Other)
  Sender: FDA-Public Use
  Company Number: 2006117929

PATIENT
  Age: 73 Year
  Sex: Male
  Weight: 801 kg

DRUGS (7)
  1. LYRICA [Suspect]
     Indication: CENTRAL PAIN SYNDROME
     Dosage: 450 MG (2 IN 1 D), ORAL
     Route: 048
     Dates: start: 20060919, end: 20060927
  2. METFORMIN HCL [Concomitant]
  3. AMLODIPINE [Concomitant]
  4. ALLOPURINOL [Concomitant]
  5. FUROSEMIDE [Concomitant]
  6. SIMVASTATIN [Concomitant]
  7. ASPIRIN [Concomitant]

REACTIONS (6)
  - CONFUSIONAL STATE [None]
  - INFECTION [None]
  - MENINGISM [None]
  - MUSCULOSKELETAL STIFFNESS [None]
  - RENAL FAILURE [None]
  - SOMNOLENCE [None]
